FAERS Safety Report 9852475 (Version 1)
Quarter: 2014Q1

REPORT INFORMATION
  Report Type: Spontaneous
  Country: US (occurrence: US)
  Receive Date: 20140129
  Receipt Date: 20140129
  Transmission Date: 20141002
  Serious: Yes (Hospitalization)
  Sender: FDA-Public Use
  Company Number: US-MERCK-1401USA012383

PATIENT
  Age: 55 Year
  Sex: Female

DRUGS (4)
  1. SAPHRIS [Suspect]
     Indication: BIPOLAR DISORDER
     Dosage: 10 MG, HS,
     Route: 060
     Dates: start: 20111215
  2. XANAX [Concomitant]
     Dosage: UNK
  3. ZOLOFT [Concomitant]
     Dosage: UNK
  4. REMERON [Concomitant]
     Dosage: UNK

REACTIONS (2)
  - Mental disorder [Unknown]
  - Mental disorder [Recovered/Resolved]
